FAERS Safety Report 6684486-8 (Version None)
Quarter: 2010Q2

REPORT INFORMATION
  Report Type: 
  Country: None (occurrence: None)
  Receive Date: 20100416
  Receipt Date: 20100415
  Transmission Date: 20101027
  Serious: Yes (Hospitalization)
  Sender: FDA-Public Use
  Company Number: US-RB-000984-10

PATIENT
  Age: 59 Year
  Sex: Female

DRUGS (2)
  1. SUBOXONE [Suspect]
     Route: 060
     Dates: start: 20090101, end: 20100315
  2. VICODIN [Suspect]
     Indication: PAIN
     Dosage: DOSING INFORMATION UNKNOWN
     Route: 065
     Dates: end: 20100315

REACTIONS (9)
  - AMNESIA [None]
  - CHRONIC OBSTRUCTIVE PULMONARY DISEASE [None]
  - DRUG WITHDRAWAL SYNDROME [None]
  - INFLUENZA [None]
  - LETHARGY [None]
  - OVERDOSE [None]
  - OXYGEN SATURATION [None]
  - RESPIRATORY DISTRESS [None]
  - SLEEP DISORDER [None]
